FAERS Safety Report 14912379 (Version 1)
Quarter: 2018Q2

REPORT INFORMATION
  Report Type: Spontaneous
  Country: US (occurrence: US)
  Receive Date: 20180501
  Receipt Date: 20180501
  Transmission Date: 20180711
  Serious: Yes (Death)
  Sender: FDA-Public Use
  Company Number: None

PATIENT
  Age: 57 Year
  Sex: Female

DRUGS (24)
  1. LETROZOLE. [Concomitant]
     Active Substance: LETROZOLE
  2. CLONAZEPAM. [Concomitant]
     Active Substance: CLONAZEPAM
  3. POLYETH GLY POW [Concomitant]
  4. VITAMIN B6 [Concomitant]
     Active Substance: PYRIDOXINE HYDROCHLORIDE
  5. CALC CITRAT WAF  MAG/VITD [Concomitant]
  6. ZOFRAN [Concomitant]
     Active Substance: ONDANSETRON HYDROCHLORIDE
  7. PANTOPRAZOLE [Concomitant]
     Active Substance: PANTOPRAZOLE
  8. LEVOFLOXACIN. [Concomitant]
     Active Substance: LEVOFLOXACIN
  9. IBRANCE [Suspect]
     Active Substance: PALBOCICLIB
     Indication: BREAST CANCER
     Dosage: ?          OTHER FREQUENCY:21 DAYS ;?
     Route: 048
     Dates: start: 20170713, end: 20170901
  10. ESTRAGALUS POW ROOT [Concomitant]
  11. HYDROMORPHONE [Concomitant]
     Active Substance: HYDROMORPHONE
  12. VIT D 3 [Concomitant]
  13. TRAMADOL. [Concomitant]
     Active Substance: TRAMADOL
  14. OMEGA 3 KRILL [Concomitant]
  15. CRAN-MAX [Concomitant]
  16. XIIDRA [Concomitant]
     Active Substance: LIFITEGRAST
  17. VIT E OIL [Concomitant]
  18. LICORICE POW ROOT [Concomitant]
  19. FERROUS SULF [Concomitant]
     Active Substance: FERROUS SULFATE
  20. ONDANSETRON [Concomitant]
     Active Substance: ONDANSETRON
  21. HYDRO/APAP [Concomitant]
     Active Substance: ACETAMINOPHEN\HYDROCODONE
  22. VITAMIN C [Concomitant]
     Active Substance: ASCORBIC ACID
  23. VITAMIN D [Concomitant]
     Active Substance: CHOLECALCIFEROL
  24. PROPRANOLOL [Concomitant]
     Active Substance: PROPRANOLOL HYDROCHLORIDE

REACTIONS (5)
  - Acute kidney injury [None]
  - Pneumonia [None]
  - Breast cancer metastatic [None]
  - Hepatic failure [None]
  - Septic shock [None]

NARRATIVE: CASE EVENT DATE: 20171115
